FAERS Safety Report 12286310 (Version 4)
Quarter: 2022Q2

REPORT INFORMATION
  Report Type: Spontaneous
  Country: US (occurrence: US)
  Receive Date: 20160420
  Receipt Date: 20220429
  Transmission Date: 20220721
  Serious: No
  Sender: FDA-Public Use
  Company Number: US-PFIZER INC-2016183631

PATIENT
  Age: 33 Year
  Sex: Male
  Weight: 73 kg

DRUGS (6)
  1. LYRICA [Suspect]
     Active Substance: PREGABALIN
     Indication: Seizure
     Dosage: UNK
  2. LYRICA [Suspect]
     Active Substance: PREGABALIN
     Indication: Partial seizures
     Dosage: 200 MG, 2X/DAY, (TAKE 1 CAP BY MOUTH TWICE DAILY)
     Route: 048
  3. LYRICA [Suspect]
     Active Substance: PREGABALIN
     Indication: Focal dyscognitive seizures
  4. LYRICA [Suspect]
     Active Substance: PREGABALIN
     Indication: Epilepsy
  5. VIMPAT [Concomitant]
     Active Substance: LACOSAMIDE
     Indication: Seizure
     Dosage: 200 MG, 3X/DAY
  6. ONFI [Concomitant]
     Active Substance: CLOBAZAM
     Indication: Seizure
     Dosage: 20 MG, 3X/DAY

REACTIONS (2)
  - Withdrawal syndrome [Unknown]
  - Headache [Unknown]
